FAERS Safety Report 14869249 (Version 1)
Quarter: 2018Q2

REPORT INFORMATION
  Report Type: Spontaneous
  Country: US (occurrence: US)
  Receive Date: 20180509
  Receipt Date: 20180509
  Transmission Date: 20180711
  Serious: No
  Sender: FDA-Public Use
  Company Number: US-PFIZER INC-2018188073

PATIENT
  Sex: Female
  Weight: 177 kg

DRUGS (1)
  1. LYRICA [Suspect]
     Active Substance: PREGABALIN
     Indication: DIABETIC NEUROPATHY
     Dosage: EITHER 50MG CAPSULES OR 75MG CAPSULES, 3X/DAY
     Route: 048

REACTIONS (1)
  - Drug effect decreased [Unknown]
